FAERS Safety Report 6800884-3 (Version None)
Quarter: 2010Q2

REPORT INFORMATION
  Report Type: 
  Country: None (occurrence: None)
  Receive Date: 20100629
  Receipt Date: 20100620
  Transmission Date: 20101027
  Serious: Yes (Hospitalization)
  Sender: FDA-Public Use
  Company Number: US-JNJFOC-20100607341

PATIENT
  Sex: Female

DRUGS (2)
  1. CONCENTRATED MOTRIN INFANTS DROPS [Suspect]
     Indication: MALAISE
     Route: 048
  2. CONCENTRATED MOTRIN INFANTS DROPS [Suspect]
     Indication: PYREXIA
     Route: 048

REACTIONS (3)
  - FEBRILE CONVULSION [None]
  - PRODUCT LOT NUMBER ISSUE [None]
  - PRODUCT QUALITY ISSUE [None]
